FAERS Safety Report 6390482-0 (Version None)
Quarter: 2009Q4

REPORT INFORMATION
  Report Type: 
  Country: None (occurrence: None)
  Receive Date: 20091006
  Receipt Date: 20090922
  Transmission Date: 20100525
  Serious: Yes (Hospitalization)
  Sender: FDA-Public Use
  Company Number: IN-MYLANLABS-2009S1016635

PATIENT
  Age: 8 Year
  Sex: Male
  Weight: 20 kg

DRUGS (2)
  1. ZONISAMIDE [Suspect]
     Indication: PETIT MAL EPILEPSY
     Dosage: 2 MG/KG/DAY
     Route: 048
  2. SODIUM BENZOATE [Concomitant]
     Dosage: 250 MG/KG/DAY DIVIDED IN THREE EQUAL DOSES
     Route: 048

REACTIONS (3)
  - CONFUSIONAL STATE [None]
  - HYPERAMMONAEMIA [None]
  - VOMITING [None]
